FAERS Safety Report 18576550 (Version 1)
Quarter: 2020Q4

REPORT INFORMATION
  Report Type: Spontaneous
  Country: FR (occurrence: FR)
  Receive Date: 20201203
  Receipt Date: 20201203
  Transmission Date: 20210114
  Serious: Yes (Hospitalization)
  Sender: FDA-Public Use
  Company Number: FR-TEVA-2020-FR-1854239

PATIENT
  Age: 52 Year
  Sex: Male
  Weight: 74 kg

DRUGS (15)
  1. PRIMPERAN [Suspect]
     Active Substance: METOCLOPRAMIDE HYDROCHLORIDE
     Indication: PROPHYLAXIS OF NAUSEA AND VOMITING
     Dosage: 30 MG
     Route: 048
     Dates: start: 20200901, end: 20200902
  2. PARACETAMOL [Concomitant]
     Active Substance: ACETAMINOPHEN
     Indication: PAIN
     Dosage: 3 GM
     Route: 048
  3. CERULYSE 5 G/100 G, SOLUTION POUR INSTILLATION AURICULAIRE [Suspect]
     Active Substance: XYLENE
     Indication: CERUMEN IMPACTION
     Dosage: 3 DOSAGE FORMS, SOLUTION FOR ATRIAL INSTILLATION
     Route: 001
     Dates: start: 20200831, end: 20200901
  4. KEPPRA [Suspect]
     Active Substance: LEVETIRACETAM
     Indication: EPILEPSY
     Dosage: 2000 MG
     Route: 042
     Dates: start: 20200901, end: 20200913
  5. LOVENOX [Concomitant]
     Active Substance: ENOXAPARIN SODIUM
     Indication: THROMBOSIS PROPHYLAXIS
     Dosage: 1 DOSAGE FORMS
     Route: 058
  6. LAMICTAL [Concomitant]
     Active Substance: LAMOTRIGINE
     Indication: EPILEPSY
     Dosage: 1 DOSAGE FORMS
     Route: 048
  7. ULTRALEVURE 200 MG, GELULE [Suspect]
     Active Substance: SACCHAROMYCES CEREVISIAE
     Indication: DIARRHOEA
     Dosage: 1 DOSAGE FORMS
     Route: 048
     Dates: start: 20200901, end: 20200912
  8. PIPERACILLINE BASE [Suspect]
     Active Substance: PIPERACILLIN SODIUM
     Indication: POST PROCEDURAL INFECTION
     Dosage: 12 GM
     Route: 042
     Dates: start: 20200828, end: 20200903
  9. LINEZOLIDE [Concomitant]
     Active Substance: LINEZOLID
     Dosage: 1200 MG
     Route: 042
     Dates: start: 20200828, end: 20200915
  10. DEPAKINE [Concomitant]
     Active Substance: VALPROATE SODIUM
     Indication: EPILEPSY
     Dosage: 1250 MG
     Route: 048
  11. TEGRETOL [Concomitant]
     Active Substance: CARBAMAZEPINE
     Indication: EPILEPSY
     Dosage: 600 MG
     Route: 048
  12. URBANYL [Concomitant]
     Active Substance: CLOBAZAM
     Indication: EPILEPSY
     Dosage: 35 MG
     Route: 048
  13. ONDANSETRON [Suspect]
     Active Substance: ONDANSETRON
     Indication: PROPHYLAXIS OF NAUSEA AND VOMITING
     Dosage: 12 MG
     Route: 048
     Dates: start: 20200902, end: 20200904
  14. TAZOBACTAM [Suspect]
     Active Substance: TAZOBACTAM
     Indication: POST PROCEDURAL INFECTION
     Dosage: 1500 MG
     Route: 042
     Dates: start: 20200828, end: 20200903
  15. BACTRIM [Suspect]
     Active Substance: SULFAMETHOXAZOLE\TRIMETHOPRIM
     Indication: POST PROCEDURAL INFECTION
     Dosage: 1600 MG
     Route: 051
     Dates: start: 20200903, end: 20200910

REACTIONS (1)
  - Acute generalised exanthematous pustulosis [Recovered/Resolved]

NARRATIVE: CASE EVENT DATE: 20200904
